FAERS Safety Report 13822810 (Version 1)
Quarter: 2017Q3

REPORT INFORMATION
  Report Type: Spontaneous
  Country: JP (occurrence: JP)
  Receive Date: 20170801
  Receipt Date: 20170801
  Transmission Date: 20171127
  Serious: Yes (Hospitalization, Other)
  Sender: FDA-Public Use
  Company Number: JP-ABBVIE-17P-087-2034148-00

PATIENT

DRUGS (3)
  1. LIPACREON [Suspect]
     Active Substance: PANCRELIPASE
     Dosage: RESUMED
     Route: 048
  2. LIPACREON [Suspect]
     Active Substance: PANCRELIPASE
     Indication: PANCREATITIS
     Dosage: UNK
     Route: 048
  3. CAMOSTAT MESILATE [Concomitant]
     Active Substance: CAMOSTAT MESYLATE
     Indication: PRODUCT USED FOR UNKNOWN INDICATION
     Route: 048

REACTIONS (2)
  - Pancreatitis [Recovered/Resolved]
  - Disease progression [Recovered/Resolved]
